FAERS Safety Report 11980470 (Version 7)
Quarter: 2016Q3

REPORT INFORMATION
  Report Type: Spontaneous
  Country: US (occurrence: US)
  Receive Date: 20160129
  Receipt Date: 20160811
  Transmission Date: 20161109
  Serious: Yes (Hospitalization, Other)
  Sender: FDA-Public Use
  Company Number: US-PFIZER INC-2016031700

PATIENT
  Age: 72 Year
  Sex: Male
  Weight: 85 kg

DRUGS (14)
  1. LIPITOR [Concomitant]
     Active Substance: ATORVASTATIN CALCIUM
     Dosage: UNK
  2. GLUCOSE [Concomitant]
     Active Substance: DEXTROSE
     Dosage: UNK
  3. PRILOSEC [Concomitant]
     Active Substance: OMEPRAZOLE MAGNESIUM
     Dosage: UNK
  4. TYLENOL PM [Concomitant]
     Active Substance: ACETAMINOPHEN\DIPHENHYDRAMINE
     Dosage: UNK
  5. BENADRYL [Concomitant]
     Active Substance: DIPHENHYDRAMINE HYDROCHLORIDE
     Dosage: UNK
  6. AVODART [Concomitant]
     Active Substance: DUTASTERIDE
     Dosage: UNK
  7. SUTENT [Suspect]
     Active Substance: SUNITINIB MALATE
     Indication: METASTATIC RENAL CELL CARCINOMA
     Dosage: 12.5 MG, CYCLIC (28 DAYS ON/14 DAYS OFF)
     Dates: start: 20160115, end: 20160802
  8. CALCIUM [Concomitant]
     Active Substance: CALCIUM
     Dosage: UNK
  9. METOPROLOL. [Concomitant]
     Active Substance: METOPROLOL
     Dosage: UNK
  10. PLETAL [Concomitant]
     Active Substance: CILOSTAZOL
     Dosage: UNK
  11. FLOMAX [Concomitant]
     Active Substance: TAMSULOSIN HYDROCHLORIDE
     Dosage: UNK
  12. TYLENOL [Concomitant]
     Active Substance: ACETAMINOPHEN
     Dosage: UNK
  13. INSULIN [Concomitant]
     Active Substance: INSULIN NOS
     Dosage: UNK (INSULIN 75/25)
  14. COMBIVENT [Concomitant]
     Active Substance: ALBUTEROL SULFATE\IPRATROPIUM BROMIDE
     Dosage: UNK

REACTIONS (24)
  - Fall [Unknown]
  - Skin abrasion [Unknown]
  - Heart rate abnormal [Unknown]
  - Haemorrhage [Unknown]
  - Dyspnoea [Unknown]
  - Blood calcium abnormal [Unknown]
  - Head injury [Unknown]
  - Scratch [Unknown]
  - Fatigue [Unknown]
  - Thrombosis [Not Recovered/Not Resolved]
  - Hypervolaemia [Unknown]
  - Pulmonary oedema [Unknown]
  - Hypotension [Unknown]
  - Diarrhoea [Unknown]
  - Insomnia [Unknown]
  - Chest pain [Unknown]
  - Constipation [Unknown]
  - Nausea [Unknown]
  - Asthenia [Unknown]
  - Pneumonia [Unknown]
  - Full blood count decreased [Unknown]
  - Restlessness [Unknown]
  - Anaemia [Unknown]
  - Bradyphrenia [Unknown]
